FAERS Safety Report 8817967 (Version 1)
Quarter: 2012Q4

REPORT INFORMATION
  Report Type: 
  Country: US (occurrence: US)
  Receive Date: 20121001
  Receipt Date: 20121001
  Transmission Date: 20130627
  Serious: No
  Sender: FDA-Public Use
  Company Number: US-SANOFI-AVENTIS-2012SA051426

PATIENT
  Age: 67 Year
  Sex: Male
  Weight: 230 kg

DRUGS (2)
  1. ELIGARD [Suspect]
     Indication: PROSTATE CANCER
     Route: 051
     Dates: start: 20120430, end: 20120430
  2. GLIPIZIDE [Concomitant]
     Indication: PRODUCT USED FOR UNKNOWN INDICATION
     Route: 065

REACTIONS (4)
  - Disturbance in attention [Recovering/Resolving]
  - Myalgia [Recovering/Resolving]
  - Fatigue [Recovering/Resolving]
  - Asthenia [Recovering/Resolving]
